FAERS Safety Report 14241903 (Version 23)
Quarter: 2019Q1

REPORT INFORMATION
  Report Type: Report from Study
  Country: IE (occurrence: IE)
  Receive Date: 20171201
  Receipt Date: 20190111
  Transmission Date: 20190417
  Serious: Yes (Hospitalization, Disabling)
  Sender: FDA-Public Use
  Company Number: IE-ROCHE-2022172

PATIENT
  Age: 61 Year
  Sex: Male
  Weight: 78.9 kg

DRUGS (28)
  1. DEXAMETHASONE. [Suspect]
     Active Substance: DEXAMETHASONE
     Indication: MUCOSAL INFLAMMATION
     Route: 065
  2. BONJELA [Concomitant]
     Active Substance: CETALKONIUM CHLORIDE\CHOLINE SALICYLATE\MENTHOL
     Indication: STOMATITIS
     Route: 065
     Dates: start: 20170601
  3. VALOID [Concomitant]
     Active Substance: CYCLIZINE HYDROCHLORIDE
     Route: 065
     Dates: start: 20170508
  4. AMLODIPINE [Concomitant]
     Active Substance: AMLODIPINE BESYLATE
     Indication: HYPERTENSION
     Route: 065
     Dates: start: 20171024, end: 20171106
  5. TRAMADOL. [Concomitant]
     Active Substance: TRAMADOL
     Indication: PAIN IN EXTREMITY
  6. DEXAMETHASONE. [Suspect]
     Active Substance: DEXAMETHASONE
     Route: 065
     Dates: start: 20171122
  7. MOTILIUM [Concomitant]
     Active Substance: DOMPERIDONE
     Route: 065
     Dates: start: 20170508
  8. LACTULOSE. [Concomitant]
     Active Substance: LACTULOSE
     Indication: CONSTIPATION
     Route: 065
     Dates: start: 20171003
  9. ZOPLICONE [Concomitant]
     Active Substance: ZOPICLONE
     Indication: INSOMNIA
     Route: 065
     Dates: start: 20171107, end: 20171108
  10. BISOPROLOL [Concomitant]
     Active Substance: BISOPROLOL
     Indication: HYPERTENSION
     Route: 065
     Dates: start: 20171124
  11. FOLIC ACID. [Concomitant]
     Active Substance: FOLIC ACID
     Route: 065
     Dates: start: 20170308
  12. TRAMADOL. [Concomitant]
     Active Substance: TRAMADOL
     Indication: ARTHRALGIA
     Route: 065
     Dates: start: 20170620
  13. CYCLIZINE [Concomitant]
     Active Substance: CYCLIZINE
     Indication: NAUSEA
     Route: 065
     Dates: start: 20171122
  14. AMLODIPINE [Concomitant]
     Active Substance: AMLODIPINE BESYLATE
     Route: 065
     Dates: start: 20171107
  15. BONJELA [Concomitant]
     Active Substance: CETALKONIUM CHLORIDE\CHOLINE SALICYLATE\MENTHOL
     Indication: MUCOSAL INFLAMMATION
  16. FOLIC ACID. [Concomitant]
     Active Substance: FOLIC ACID
     Indication: ANAEMIA
     Route: 065
     Dates: start: 20150508
  17. ONDANSETRON [Concomitant]
     Active Substance: ONDANSETRON
     Route: 065
     Dates: start: 20170508
  18. ENOXAPARIN [Concomitant]
     Active Substance: ENOXAPARIN
     Indication: DEEP VEIN THROMBOSIS
     Route: 065
     Dates: start: 20171122
  19. MYCOSTATIN [Concomitant]
     Active Substance: NYSTATIN
     Route: 065
     Dates: start: 20170508
  20. AMLODIPINE [Concomitant]
     Active Substance: AMLODIPINE BESYLATE
     Route: 065
     Dates: start: 20171114
  21. E45 [Concomitant]
     Active Substance: LANOLIN\LIGHT MINERAL OIL\PARAFFIN
     Indication: DRY SKIN
     Route: 065
     Dates: start: 20171124
  22. ATEZOLIZUMAB. [Suspect]
     Active Substance: ATEZOLIZUMAB
     Indication: NON-SMALL CELL LUNG CANCER STAGE IV
     Dosage: DATE OF MOST RECENT DOSE OF TO EPISTAXIS, ADDISONIANS CRISIS (RISK OF) ONSET 1200 MG ON 24/OCT/2017.
     Route: 042
     Dates: start: 20170508
  23. CARBOPLATIN. [Suspect]
     Active Substance: CARBOPLATIN
     Indication: NON-SMALL CELL LUNG CANCER STAGE IV
     Dosage: ON DAY 1 Q3W WITH A DOSE CALCULATED USING ^CALVERT FORMULA^ TO OBTAIN AREA UNDER CONCENTRATION VERSU
     Route: 042
     Dates: start: 20170508
  24. VITAMIN B12 [Concomitant]
     Active Substance: CYANOCOBALAMIN
     Route: 065
     Dates: start: 20170508
  25. PEMETREXED. [Suspect]
     Active Substance: PEMETREXED
     Indication: NON-SMALL CELL LUNG CANCER STAGE IV
     Dosage: DAY 1 Q3W.?DATE OF MOST RECENT DOSE OF PEMETREXED PRIOR TO EPISTAXIS, ADDISONIANS CRISIS (RISK OF) O
     Route: 042
     Dates: start: 20170508
  26. LANSOPRAZOLE. [Concomitant]
     Active Substance: LANSOPRAZOLE
     Indication: GASTRITIS
     Route: 065
     Dates: start: 20170801
  27. SENNA [Concomitant]
     Active Substance: SENNA LEAF\SENNOSIDES\SENNOSIDES A AND B
     Indication: CONSTIPATION
     Route: 065
     Dates: start: 20171003
  28. PANTOPRAZOLE [Concomitant]
     Active Substance: PANTOPRAZOLE
     Indication: NAUSEA
     Route: 065
     Dates: start: 20171122, end: 20171123

REACTIONS (4)
  - Nephritis allergic [Not Recovered/Not Resolved]
  - Stomatitis [Recovered/Resolved]
  - Epistaxis [Recovered/Resolved with Sequelae]
  - Disease susceptibility [Recovered/Resolved with Sequelae]

NARRATIVE: CASE EVENT DATE: 20171106
